FAERS Safety Report 10026329 (Version 1)
Quarter: 2014Q1

REPORT INFORMATION
  Report Type: Spontaneous
  Country: US (occurrence: US)
  Receive Date: 20140321
  Receipt Date: 20140321
  Transmission Date: 20141002
  Serious: No
  Sender: FDA-Public Use
  Company Number: US-ALLERGAN-1305068US

PATIENT
  Age: 67 Year
  Sex: Female

DRUGS (3)
  1. LUMIGAN [Suspect]
     Indication: INTRAOCULAR PRESSURE INCREASED
     Dosage: 2 GTT, QHS
     Route: 047
     Dates: start: 2008
  2. DORZOLAMIDE [Suspect]
     Indication: INTRAOCULAR PRESSURE INCREASED
     Dosage: 2 GTT, QD
     Route: 047
     Dates: start: 2008
  3. ADALAT [Suspect]
     Indication: HYPERTENSION

REACTIONS (3)
  - Heart rate increased [Recovered/Resolved]
  - Vitreous floaters [Recovered/Resolved]
  - Blepharal pigmentation [Unknown]
